FAERS Safety Report 13892309 (Version 2)
Quarter: 2017Q3

REPORT INFORMATION
  Report Type: Spontaneous
  Country: US (occurrence: US)
  Receive Date: 20170822
  Receipt Date: 20170919
  Transmission Date: 20171127
  Serious: Yes (Hospitalization, Other)
  Sender: FDA-Public Use
  Company Number: US-PFIZER INC-2017360286

PATIENT
  Age: 70 Year
  Sex: Male

DRUGS (7)
  1. FORTESTA [Suspect]
     Active Substance: TESTOSTERONE
     Indication: HORMONE REPLACEMENT THERAPY
     Dosage: 10 MG, 4X/DAY (PUMPS)
     Route: 061
     Dates: start: 2013, end: 2014
  2. FORTESTA [Suspect]
     Active Substance: TESTOSTERONE
     Dosage: UNK
     Route: 061
     Dates: start: 2013
  3. ANDROGEL [Suspect]
     Active Substance: TESTOSTERONE
     Indication: HORMONE REPLACEMENT THERAPY
     Dosage: UNK
     Route: 061
     Dates: start: 2013
  4. TESTOSTERONE CYPIONATE. [Suspect]
     Active Substance: TESTOSTERONE CYPIONATE
     Dosage: 200 MG/ML, UNK
     Dates: start: 20110818
  5. DEPO-TESTOSTERONE [Suspect]
     Active Substance: TESTOSTERONE CYPIONATE
     Indication: HORMONE REPLACEMENT THERAPY
     Dosage: UNK
     Dates: start: 2013
  6. ANDROGEL [Suspect]
     Active Substance: TESTOSTERONE
     Dosage: UNK, 1X/DAY (ONCE A DAY )
     Dates: start: 2014
  7. TESTOSTERONE CYPIONATE. [Suspect]
     Active Substance: TESTOSTERONE CYPIONATE
     Indication: HORMONE REPLACEMENT THERAPY
     Dosage: 100 MG/ML, UNK
     Dates: start: 20110617

REACTIONS (8)
  - Asthenia [Unknown]
  - Insomnia [Unknown]
  - Neoplasm malignant [Not Recovered/Not Resolved]
  - Myocardial infarction [Unknown]
  - Atrial fibrillation [Unknown]
  - Cardiac arrest [Unknown]
  - Disturbance in attention [Unknown]
  - Loss of libido [Not Recovered/Not Resolved]

NARRATIVE: CASE EVENT DATE: 20150903
